FAERS Safety Report 5115118-8 (Version None)
Quarter: 2006Q3

REPORT INFORMATION
  Report Type: 
  Country: None (occurrence: None)
  Receive Date: 20060925
  Receipt Date: 20060925
  Transmission Date: 20061208
  Serious: Yes (Life-Threatening)
  Sender: FDA-Public Use
  Company Number: None

PATIENT
  Age: 58 Year
  Sex: Female
  Weight: 79.8331 kg

DRUGS (2)
  1. DIOVAN HCT [Suspect]
     Indication: HYPERTENSION
     Dosage: ONE     ONCE DAILY   PO
     Route: 048
     Dates: start: 20000715, end: 20060924
  2. CENTRUM MIV-MINERALS [Concomitant]

REACTIONS (1)
  - ADENOCARCINOMA [None]
